FAERS Safety Report 23677525 (Version 5)
Quarter: 2024Q2

REPORT INFORMATION
  Report Type: Spontaneous
  Country: AT (occurrence: AT)
  Receive Date: 20240327
  Receipt Date: 20240429
  Transmission Date: 20240716
  Serious: No
  Sender: FDA-Public Use
  Company Number: AT-PFIZER INC-PV202400034707

PATIENT
  Age: 24 Year
  Sex: Female
  Weight: 61.6 kg

DRUGS (1)
  1. MEDROXYPROGESTERONE [Suspect]
     Active Substance: MEDROXYPROGESTERONE
     Dosage: STARTED APPROX 1.5 YEARS AGO
     Dates: start: 2022

REACTIONS (3)
  - Skin disorder [Unknown]
  - Syringe issue [Unknown]
  - Drug dose omission by device [Unknown]

NARRATIVE: CASE EVENT DATE: 20240101
